FAERS Safety Report 7638629-X (Version None)
Quarter: 2011Q3

REPORT INFORMATION
  Report Type: 
  Country: None (occurrence: None)
  Receive Date: 20110727
  Receipt Date: 20110722
  Transmission Date: 20111222
  Serious: Yes (Other)
  Sender: FDA-Public Use
  Company Number: BR-PFIZER INC-2009250131

PATIENT
  Age: 37 Year
  Sex: Male
  Weight: 88 kg

DRUGS (10)
  1. GLIBENCLAMIDE [Concomitant]
     Indication: DIABETES MELLITUS
     Dosage: UNK
  2. CLONAZEPAM [Suspect]
     Indication: NERVOUSNESS
     Dosage: UNK
     Route: 048
  3. AMLODIPINE [Concomitant]
     Dosage: UNK
  4. GEODON [Suspect]
     Indication: SCHIZOPHRENIA
     Dosage: 160 MG, 1X/DAY
     Route: 048
  5. GEODON [Suspect]
     Indication: NERVOUSNESS
  6. DEPAKENE [Concomitant]
     Indication: LIBIDO INCREASED
     Dosage: 1000 MG, UNK
     Dates: start: 20080101
  7. METFORMIN [Concomitant]
     Indication: DIABETES MELLITUS
     Dosage: UNK
  8. NAVOTRAX [Concomitant]
     Indication: SLEEP DISORDER
     Dosage: 2 MG, UNK
  9. PROMETAZIN [Concomitant]
     Indication: NERVOUSNESS
     Dosage: 50 MG, UNK
  10. NAVOTRAX [Concomitant]
     Indication: NERVOUSNESS

REACTIONS (16)
  - MOOD ALTERED [None]
  - AGGRESSION [None]
  - EJACULATION DELAYED [None]
  - SOMNOLENCE [None]
  - LIBIDO INCREASED [None]
  - DYSARTHRIA [None]
  - FATIGUE [None]
  - ERUCTATION [None]
  - PRIAPISM [None]
  - DRUG DEPENDENCE [None]
  - INSOMNIA [None]
  - ERECTILE DYSFUNCTION [None]
  - CRYING [None]
  - SPEECH DISORDER [None]
  - INAPPROPRIATE AFFECT [None]
  - DYSGEUSIA [None]
